FAERS Safety Report 7247666-9 (Version None)
Quarter: 2011Q1

REPORT INFORMATION
  Report Type: 
  Country: None (occurrence: None)
  Receive Date: 20110127
  Receipt Date: 20110122
  Transmission Date: 20110831
  Serious: Yes (Other)
  Sender: FDA-Public Use
  Company Number: US-PFIZER INC-2011015757

PATIENT
  Sex: Male
  Weight: 95.238 kg

DRUGS (2)
  1. ADVIL [Suspect]
     Indication: NASOPHARYNGITIS
     Dosage: 400 MG, DAILY
     Route: 048
     Dates: start: 20110120, end: 20110122
  2. ADVIL [Suspect]
     Indication: SINUS DISORDER

REACTIONS (3)
  - EPISTAXIS [None]
  - NASAL CONGESTION [None]
  - HYPERTENSION [None]
